FAERS Safety Report 19949333 (Version 1)
Quarter: 2021Q4

REPORT INFORMATION
  Report Type: Spontaneous
  Country: US (occurrence: US)
  Receive Date: 20211011
  Receipt Date: 20211011
  Transmission Date: 20220303
  Serious: No
  Sender: FDA-Public Use
  Company Number: None

PATIENT
  Age: 74 Year
  Sex: Male

DRUGS (1)
  1. HUMIRA [Suspect]
     Active Substance: ADALIMUMAB
     Dosage: 1 PEN OTHER
     Route: 058
     Dates: start: 202106

REACTIONS (1)
  - Pericardial calcification [None]

NARRATIVE: CASE EVENT DATE: 20211011
